FAERS Safety Report 7576159-4 (Version None)
Quarter: 2011Q2

REPORT INFORMATION
  Report Type: 
  Country: None (occurrence: None)
  Receive Date: 20110623
  Receipt Date: 20110623
  Transmission Date: 20111010
  Serious: Yes (Death)
  Sender: FDA-Public Use
  Company Number: None

PATIENT
  Age: 66 Year
  Sex: Male

DRUGS (8)
  1. MORPHINE [Concomitant]
  2. REVLIMID [Suspect]
     Indication: MULTIPLE MYELOMA
     Dosage: 10MG QDX21D/28D ORALL
     Route: 048
     Dates: start: 20091001, end: 20091101
  3. HYDROCHLOROTHIAZIDE [Concomitant]
  4. ZOLPIDEM [Concomitant]
  5. DECADRON [Concomitant]
  6. PERCOCET [Concomitant]
  7. ASPIRIN [Concomitant]
  8. VICODIN [Concomitant]

REACTIONS (5)
  - PYREXIA [None]
  - PANCYTOPENIA [None]
  - COUGH [None]
  - LUNG INFILTRATION [None]
  - DYSPNOEA [None]
